FAERS Safety Report 5458592-X (Version None)
Quarter: 2007Q3

REPORT INFORMATION
  Report Type: 
  Country: None (occurrence: None)
  Receive Date: 20070919
  Receipt Date: 20070917
  Transmission Date: 20080115
  Serious: Yes (Other)
  Sender: FDA-Public Use
  Company Number: FR-BRISTOL-MYERS SQUIBB COMPANY-13911599

PATIENT
  Age: 68 Year
  Sex: Male

DRUGS (3)
  1. CYCLOPHOSPHAMIDE [Suspect]
     Route: 048
     Dates: start: 20060201
  2. FLUDARABINE PHOSPHATE [Suspect]
     Route: 048
     Dates: start: 20060201
  3. CAMPATH [Suspect]
     Route: 042

REACTIONS (2)
  - B-CELL LYMPHOMA [None]
  - HISTIOCYTOSIS HAEMATOPHAGIC [None]
